FAERS Safety Report 23980800 (Version 1)
Quarter: 2024Q2

REPORT INFORMATION
  Report Type: Spontaneous
  Country: ZA (occurrence: None)
  Receive Date: 20240617
  Receipt Date: 20240617
  Transmission Date: 20240716
  Serious: Yes (Death)
  Sender: FDA-Public Use
  Company Number: 2024A138112

PATIENT
  Age: 77 Year
  Sex: Male

DRUGS (9)
  1. BUDESONIDE\FORMOTEROL [Suspect]
     Active Substance: BUDESONIDE\FORMOTEROL
     Indication: Asthma
     Dosage: 120 DOSE 160/4.5 MCG, UNKNOWN UNKNOWN
     Route: 055
  2. SERTRALINE HYDROCHLORIDE [Concomitant]
     Active Substance: SERTRALINE HYDROCHLORIDE
     Indication: Psychiatric care
  3. UROMAX [Concomitant]
     Indication: Prostatomegaly
  4. LIPOGEN [Concomitant]
     Indication: Blood cholesterol
  5. GLYCOPYRRONIUM\INDACATEROL [Concomitant]
     Active Substance: GLYCOPYRRONIUM\INDACATEROL
     Indication: Dementia Alzheimer^s type
     Dosage: 50/110 MCG
  6. LANOXIN [Concomitant]
     Active Substance: DIGOXIN
     Indication: Arrhythmia
  7. METFORMIN HYDROCHLORIDE [Concomitant]
     Active Substance: METFORMIN HYDROCHLORIDE
     Indication: Diabetes mellitus
  8. TRULICITY PRE-FILLED [Concomitant]
     Indication: Diabetes mellitus
  9. RIVAROXABAN [Concomitant]
     Active Substance: RIVAROXABAN
     Indication: Thrombosis

REACTIONS (1)
  - Death [Fatal]
